FAERS Safety Report 5748673-5 (Version None)
Quarter: 2008Q2

REPORT INFORMATION
  Report Type: 
  Country: None (occurrence: None)
  Receive Date: 20080521
  Receipt Date: 20080506
  Transmission Date: 20081010
  Serious: Yes (Hospitalization)
  Sender: FDA-Public Use
  Company Number: 2008S1007718

PATIENT
  Age: 49 Year
  Sex: Female

DRUGS (15)
  1. ALBUTEROL [Suspect]
     Indication: ASTHMA
     Dosage: 5 MG;NULL_1_HOUR; 10 MG;NULL_1_HOUR; 2.5 MG
  2. SALMETEROL/FLUTICASONPROPIONAAT [Suspect]
  3. MONTELUKAST SODIUM [Concomitant]
  4. LEVOSALBUTAMOL [Concomitant]
  5. FEXOFENADINE [Concomitant]
  6. FLUTICASONE PROPIONATE [Concomitant]
  7. AZELASTINE HCL [Concomitant]
  8. IPRATROPIUM BROMIDE [Concomitant]
  9. PANTOPRAZOLE [Concomitant]
  10. HYDROCHLOROTHIAZIDE [Concomitant]
  11. WARFARIN SODIUM [Concomitant]
  12. IPRATROPIUM BROMIDE [Concomitant]
  13. PREDNISONE TAB [Concomitant]
  14. MAGNESIUM SULFATE [Concomitant]
  15. METHYLPREDNISOLONE [Concomitant]

REACTIONS (8)
  - ASTHMA [None]
  - BLOOD PRESSURE INCREASED [None]
  - CHILLS [None]
  - DIZZINESS [None]
  - HEART RATE INCREASED [None]
  - NO THERAPEUTIC RESPONSE [None]
  - OEDEMA PERIPHERAL [None]
  - PCO2 INCREASED [None]
